FAERS Safety Report 18961228 (Version 4)
Quarter: 2022Q1

REPORT INFORMATION
  Report Type: Report from Study
  Country: US (occurrence: US)
  Receive Date: 20210302
  Receipt Date: 20220131
  Transmission Date: 20220423
  Serious: No
  Sender: FDA-Public Use
  Company Number: NVSC2021US048312

PATIENT
  Sex: Female

DRUGS (3)
  1. COSENTYX [Suspect]
     Active Substance: SECUKINUMAB
     Indication: Psoriasis
     Dosage: 300 MG, QW
     Route: 058
     Dates: start: 20210225
  2. COSENTYX [Suspect]
     Active Substance: SECUKINUMAB
     Dosage: 300 MG, ONCE A WEEK FOR 5 WEEKS AND THEN Q4 WEEKS
     Route: 058
  3. COSENTYX [Suspect]
     Active Substance: SECUKINUMAB
     Dosage: 300 MG (ONCE A WEEK FOR 5 WEEKS AND THEN Q4)
     Route: 050

REACTIONS (4)
  - Injection site bruising [Unknown]
  - Product dose omission issue [Unknown]
  - Arthralgia [Unknown]
  - Pain [Unknown]
